FAERS Safety Report 9983458 (Version 2)
Quarter: 2014Q1

REPORT INFORMATION
  Report Type: Spontaneous
  Country: FR (occurrence: FR)
  Receive Date: 20140307
  Receipt Date: 20140317
  Transmission Date: 20141002
  Serious: Yes (Hospitalization, Other)
  Sender: FDA-Public Use
  Company Number: FR-NOVOPROD-401764

PATIENT
  Age: 64 Year
  Sex: Male
  Weight: 95 kg

DRUGS (7)
  1. VICTOZA [Suspect]
     Indication: TYPE 2 DIABETES MELLITUS
     Dosage: 1.8 MG, QD
     Route: 058
     Dates: start: 201102
  2. GLUCOPHAGE [Concomitant]
     Indication: TYPE 2 DIABETES MELLITUS
     Dosage: 3 G, QD
     Route: 048
     Dates: start: 1990
  3. DIAMICRON [Concomitant]
     Indication: TYPE 2 DIABETES MELLITUS
     Dosage: 30 MG, QD
     Route: 048
     Dates: start: 201202
  4. MIANSERINE [Concomitant]
     Indication: DEPRESSION
     Dosage: 30 MG, QD
     Route: 048
  5. TRIATEC                            /00116401/ [Concomitant]
     Indication: HYPERTENSION
     Dosage: 3.75 MG, QD
     Route: 048
     Dates: start: 2012
  6. TAHOR [Concomitant]
     Indication: HYPERCHOLESTEROLAEMIA
     Dosage: 10 MG, QD
     Route: 048
  7. MECIR [Concomitant]
     Indication: PROSTATE CANCER
     Dosage: 0.4 MG, QD
     Route: 048

REACTIONS (1)
  - Papillary thyroid cancer [Unknown]
